FAERS Safety Report 4457747-0 (Version None)
Quarter: 2004Q3

REPORT INFORMATION
  Report Type: 
  Country: None (occurrence: None)
  Receive Date: 20040923
  Receipt Date: 20040910
  Transmission Date: 20050211
  Serious: Yes (Hospitalization, Other)
  Sender: FDA-Public Use
  Company Number: 2004064607

PATIENT
  Age: 68 Year
  Sex: Female

DRUGS (11)
  1. QUINAPRIL HCL [Suspect]
     Indication: HYPERTENSION
     Dosage: 10 MG (10 MG, 1 IN D), ORAL
     Route: 048
     Dates: end: 20040804
  2. OMEPRAZOLE [Concomitant]
  3. INSULIN [Concomitant]
  4. FLUCONAZOLE 9FLUCONAZOLE) [Concomitant]
  5. PIP/TAZO (PIPERACILLIN SODIUM, TAZOBACTAM SODIUM) [Concomitant]
  6. METFORMIN HCL [Concomitant]
  7. GLIMEPIRIDE [Concomitant]
  8. SUCRALFATE [Concomitant]
  9. FOLIC ACID [Concomitant]
  10. CALCIUM -SANDOZ FORTE (CALCIUM CARBONATE , CALCIUM LACTOGLUCONATE) [Concomitant]
  11. ERGOCALCIFEROL (ERGOCALCIFEROL) [Concomitant]

REACTIONS (3)
  - DRUG INEFFECTIVE [None]
  - ERYTHROPOIESIS ABNORMAL [None]
  - IDIOPATHIC THROMBOCYTOPENIC PURPURA [None]
